FAERS Safety Report 9911476 (Version 2)
Quarter: 2014Q1

REPORT INFORMATION
  Report Type: Spontaneous
  Country: JP (occurrence: JP)
  Receive Date: 20140219
  Receipt Date: 20140319
  Transmission Date: 20141002
  Serious: Yes (Other)
  Sender: FDA-Public Use
  Company Number: PHHY2014JP018617

PATIENT
  Sex: Male

DRUGS (5)
  1. SANDOSTATIN [Suspect]
     Indication: PULMONARY ARTERY ATRESIA
     Dosage: UNK UKN, EVERY DAY
     Route: 058
     Dates: end: 20140130
  2. SANDOSTATIN [Suspect]
     Indication: OFF LABEL USE
  3. VITAMIN K [Interacting]
     Dosage: UNK UKN, UNK
  4. WARFARIN POTASSIUM [Interacting]
     Dosage: UNK UKN, UNK
     Route: 048
  5. INTRALIPOS [Suspect]
     Dosage: UNK UKN, UNK

REACTIONS (3)
  - Prothrombin time prolonged [Recovered/Resolved]
  - Drug administered to patient of inappropriate age [Unknown]
  - Drug interaction [Unknown]
